FAERS Safety Report 10223885 (Version 1)
Quarter: 2014Q2

REPORT INFORMATION
  Report Type: Spontaneous
  Country: ES (occurrence: ES)
  Receive Date: 20140609
  Receipt Date: 20140609
  Transmission Date: 20141212
  Serious: Yes (Hospitalization)
  Sender: FDA-Public Use
  Company Number: ES-JNJFOC-20140602161

PATIENT
  Age: 67 Year
  Sex: Male

DRUGS (20)
  1. PALEXIA RETARD [Suspect]
     Indication: PAIN
     Route: 048
  2. FUROSEMIDE [Interacting]
     Indication: OEDEMA
     Route: 048
  3. IBUPROFEN [Concomitant]
     Indication: ARTHRALGIA
     Route: 048
     Dates: start: 201309
  4. IBUPROFEN [Concomitant]
     Indication: GINGIVITIS
     Route: 048
     Dates: start: 201309
  5. SUCRALFATE [Concomitant]
     Indication: PROPHYLAXIS
     Route: 048
     Dates: start: 20130801
  6. OLMESARTAN [Concomitant]
     Indication: HYPERTENSION
     Route: 048
     Dates: start: 2003
  7. FLUOROURACIL [Concomitant]
     Indication: GASTROOESOPHAGEAL CANCER
     Route: 040
     Dates: start: 20130829
  8. FLUOROURACIL [Concomitant]
     Indication: GASTROOESOPHAGEAL CANCER
     Route: 040
     Dates: start: 20130829
  9. AMLODIPINE [Concomitant]
     Indication: HYPERTENSION
     Route: 048
     Dates: start: 2003
  10. ROSUVASTATIN [Concomitant]
     Indication: DYSLIPIDAEMIA
     Route: 048
     Dates: start: 1993
  11. ALLOPURINOL [Concomitant]
     Indication: HYPERURICAEMIA
     Route: 048
     Dates: start: 1993
  12. DEXAMETHASONE [Concomitant]
     Indication: PREMEDICATION
     Route: 042
     Dates: start: 20131010
  13. GRANISETRON HYDROCHLORIDE [Concomitant]
     Indication: PREMEDICATION
     Route: 042
     Dates: start: 20131010
  14. DEXKETOPROFEN TROMETAMOL [Concomitant]
     Indication: ARTHRALGIA
     Route: 048
     Dates: start: 20131120
  15. PREDNISONE [Concomitant]
     Indication: ARTHRALGIA
     Route: 014
     Dates: start: 20131217
  16. FOLINIC ACID [Concomitant]
     Indication: GASTROOESOPHAGEAL CANCER
     Route: 042
     Dates: start: 20130829
  17. OMEPRAZOLE [Concomitant]
     Indication: PROPHYLAXIS
     Route: 048
     Dates: start: 20130801
  18. ONARTUZUMAB [Concomitant]
     Indication: GASTROOESOPHAGEAL CANCER
     Route: 042
     Dates: start: 20130829
  19. OXALIPLATIN [Concomitant]
     Indication: GASTROOESOPHAGEAL CANCER
     Route: 042
     Dates: start: 20130829
  20. HYDROCHLOROTHIAZIDE [Concomitant]
     Indication: HYPERTENSION
     Route: 048
     Dates: start: 2003

REACTIONS (2)
  - Renal failure [Recovered/Resolved]
  - Drug interaction [Recovered/Resolved]
